FAERS Safety Report 6148608-X (Version None)
Quarter: 2009Q2

REPORT INFORMATION
  Report Type: 
  Country: None (occurrence: None)
  Receive Date: 20090408
  Receipt Date: 20080428
  Transmission Date: 20091009
  Serious: No
  Sender: FDA-Public Use
  Company Number: US-TYCO HEALTHCARE/MALLINCKRODT-T200800747

PATIENT

DRUGS (2)
  1. NALTREXONE HYDROCHLORIDE [Suspect]
     Indication: ALCOHOL REHABILITATION
     Dosage: 25 MG, PRN
     Route: 048
     Dates: start: 20070430, end: 20080430
  2. FLUOXETINE [Concomitant]
     Indication: DEPRESSION
     Dosage: 20 MG, HS
     Route: 048
     Dates: start: 20030101

REACTIONS (3)
  - BALANCE DISORDER [None]
  - DIZZINESS [None]
  - FEELING ABNORMAL [None]
